FAERS Safety Report 9203546 (Version 1)
Quarter: 2013Q2

REPORT INFORMATION
  Report Type: Spontaneous
  Country: US (occurrence: US)
  Receive Date: 20130402
  Receipt Date: 20130402
  Transmission Date: 20140414
  Serious: No
  Sender: FDA-Public Use
  Company Number: US-PFIZER INC-2013100748

PATIENT
  Sex: Male

DRUGS (2)
  1. TOVIAZ [Suspect]
     Dosage: UNK
  2. TOVIAZ [Suspect]
     Dosage: UNK, ALTERNATE DAY

REACTIONS (1)
  - Gastric disorder [Unknown]
